FAERS Safety Report 7108040-9 (Version None)
Quarter: 2010Q4

REPORT INFORMATION
  Report Type: 
  Country: None (occurrence: None)
  Receive Date: 20101117
  Receipt Date: 20101110
  Transmission Date: 20110411
  Serious: Yes (Hospitalization)
  Sender: FDA-Public Use
  Company Number: FR-PFIZER INC-2010144461

PATIENT
  Age: 60 Year
  Sex: Female

DRUGS (4)
  1. SOLU-MEDROL [Suspect]
     Indication: PREMEDICATION
     Dosage: 120 MG, SINGLE
     Route: 042
     Dates: start: 20101018, end: 20101018
  2. ZANTAC [Suspect]
     Indication: PREMEDICATION
     Dosage: 50 MG, SINGLE
     Route: 042
     Dates: start: 20101018
  3. KYTRIL [Suspect]
     Indication: PREMEDICATION
     Dosage: 30 MG, SINGLE
     Route: 042
     Dates: start: 20101018
  4. POLARAMINE [Suspect]
     Indication: PREMEDICATION
     Dosage: 2 MG, SINGLE
     Route: 048
     Dates: start: 20101018

REACTIONS (5)
  - CONVULSION [None]
  - ERYTHEMA [None]
  - LOSS OF CONSCIOUSNESS [None]
  - MALAISE [None]
  - NAUSEA [None]
